FAERS Safety Report 7022607-8 (Version None)
Quarter: 2010Q3

REPORT INFORMATION
  Report Type: 
  Country: None (occurrence: None)
  Receive Date: 20100930
  Receipt Date: 20100923
  Transmission Date: 20110219
  Serious: Yes (Other)
  Sender: FDA-Public Use
  Company Number: VE-PFIZER INC-2010122216

PATIENT
  Age: 77 Year
  Sex: Female

DRUGS (4)
  1. LIPITOR [Suspect]
     Indication: HYPERCHOLESTEROLAEMIA
     Dosage: 20 MG, 1X/DAY
     Route: 048
     Dates: start: 20100301, end: 20100901
  2. AMITRIPTYLINE HCL [Concomitant]
     Indication: DEPRESSION
     Dosage: 25 MG, 1X/DAY
     Route: 048
     Dates: start: 20100908
  3. MICROSER [Concomitant]
     Indication: VERTIGO
     Dosage: 16 MG, 1X/DAY
     Route: 048
     Dates: start: 20100908
  4. SIRDALUD [Concomitant]
     Indication: MUSCLE SPASMS
     Dosage: 2 MG, 1X/DAY
     Route: 048
     Dates: start: 20100908

REACTIONS (1)
  - SYNCOPE [None]
